FAERS Safety Report 20153520 (Version 3)
Quarter: 2021Q4

REPORT INFORMATION
  Report Type: Report from Study
  Country: KR (occurrence: KR)
  Receive Date: 20211206
  Receipt Date: 20211227
  Transmission Date: 20220303
  Serious: Yes (Hospitalization)
  Sender: FDA-Public Use
  Company Number: KR-DSPHARMA-2021DSP018971

PATIENT
  Age: 38 Year
  Sex: Male

DRUGS (18)
  1. LURASIDONE HYDROCHLORIDE [Suspect]
     Active Substance: LURASIDONE HYDROCHLORIDE
     Indication: Schizophrenia
     Dosage: LURASIDONE 160 MG / QUETIAPINE XR 600 MG
     Route: 048
     Dates: start: 20211015, end: 20211116
  2. QUETIAPINE [Suspect]
     Active Substance: QUETIAPINE
     Indication: Schizophrenia
     Dosage: LURASIDONE 160 MG / QUETIAPINE XR 600 MG
     Route: 048
     Dates: start: 20211015, end: 20211116
  3. LURASIDONE HYDROCHLORIDE [Suspect]
     Active Substance: LURASIDONE HYDROCHLORIDE
     Dosage: LURASIDONE 120 MG / QUETIAPINE XR 450 MG
     Route: 048
     Dates: start: 20211011, end: 20211014
  4. QUETIAPINE [Suspect]
     Active Substance: QUETIAPINE
     Dosage: LURASIDONE 120 MG / QUETIAPINE XR 450 MG
     Route: 048
     Dates: start: 20211011, end: 20211014
  5. LURASIDONE HYDROCHLORIDE [Suspect]
     Active Substance: LURASIDONE HYDROCHLORIDE
     Dosage: LURASIDONE 80 MG / QUETIAPINE XR 300 MG
     Route: 048
     Dates: start: 20211008, end: 20211010
  6. QUETIAPINE [Suspect]
     Active Substance: QUETIAPINE
     Dosage: LURASIDONE 80 MG / QUETIAPINE XR 300 MG
     Route: 048
     Dates: start: 20211008, end: 20211010
  7. LURASIDONE HYDROCHLORIDE [Suspect]
     Active Substance: LURASIDONE HYDROCHLORIDE
     Dosage: PLACEBO RUN-IN
     Route: 048
     Dates: start: 20211005, end: 20211007
  8. QUETIAPINE [Suspect]
     Active Substance: QUETIAPINE
     Dosage: PLACEBO RUN-IN
     Route: 048
     Dates: start: 20211005, end: 20211007
  9. QUETIAPINE [Concomitant]
     Active Substance: QUETIAPINE
     Indication: Schizophrenia
     Dosage: 600 MG
     Route: 048
     Dates: start: 20211117, end: 20211123
  10. ALPRAZOLAM [Concomitant]
     Active Substance: ALPRAZOLAM
     Indication: Anxiety
     Dosage: 1.5 MG
     Route: 048
     Dates: start: 20210924, end: 20211011
  11. ALPRAZOLAM [Concomitant]
     Active Substance: ALPRAZOLAM
     Dosage: 0.5 MG
     Route: 048
     Dates: start: 20211102, end: 20211116
  12. ALPRAZOLAM [Concomitant]
     Active Substance: ALPRAZOLAM
     Dosage: 0.25 MG
     Route: 048
     Dates: start: 20211014, end: 20211101
  13. ALPRAZOLAM [Concomitant]
     Active Substance: ALPRAZOLAM
     Dosage: 1 MG
     Route: 048
     Dates: start: 20211012, end: 20211013
  14. PSEUDOEPHEDRINE [Concomitant]
     Active Substance: PSEUDOEPHEDRINE
     Indication: Rhinorrhoea
     Dosage: 1 TAB/CAP
     Route: 048
     Dates: start: 20211013, end: 20211109
  15. HALOPERIDOL [Concomitant]
     Active Substance: HALOPERIDOL
     Indication: Schizophrenia
     Dosage: 2.5 MG
     Route: 030
     Dates: start: 20211123, end: 20211123
  16. LORAZEPAM [Concomitant]
     Active Substance: LORAZEPAM
     Indication: Akathisia
     Dosage: 4 MG
     Route: 042
     Dates: start: 20211123, end: 20211123
  17. PROPRANOLOL [Concomitant]
     Active Substance: PROPRANOLOL HYDROCHLORIDE
     Indication: Anxiety
     Dosage: 40 MG
     Route: 048
     Dates: start: 20211124, end: 20211124
  18. CLONAZEPAM [Concomitant]
     Active Substance: CLONAZEPAM
     Indication: Anxiety
     Dosage: 1 MG
     Route: 048
     Dates: start: 20211124, end: 20211124

REACTIONS (1)
  - Hallucination, auditory [Recovered/Resolved]

NARRATIVE: CASE EVENT DATE: 20211124
